FAERS Safety Report 9878241 (Version 2)
Quarter: 2014Q2

REPORT INFORMATION
  Report Type: Spontaneous
  Country: FR (occurrence: FR)
  Receive Date: 20140206
  Receipt Date: 20140415
  Transmission Date: 20141212
  Serious: Yes (Other)
  Sender: FDA-Public Use
  Company Number: FR-PFIZER INC-2014029055

PATIENT
  Age: 19 Year
  Sex: Male

DRUGS (12)
  1. TAHOR [Suspect]
     Dosage: UNK
     Route: 048
     Dates: start: 20131203
  2. LOVENOX [Suspect]
     Dosage: THRICE WEEKLY IN DIALYSIS SESSION
     Route: 058
     Dates: start: 201308
  3. MOPRAL [Suspect]
     Dosage: UNK
     Route: 048
     Dates: start: 20131128
  4. DOLIPRANE [Suspect]
     Dosage: UNK
     Route: 048
     Dates: start: 20131128
  5. LEVOTHYROX [Suspect]
     Dosage: UNK
     Dates: start: 20130730
  6. LYSANXIA [Suspect]
     Dosage: UNK
     Dates: start: 20131128
  7. MOTILIUM [Suspect]
     Dosage: UNK
     Dates: start: 20131128
  8. ATARAX [Suspect]
     Dosage: UNK
     Dates: start: 20131128
  9. TOPALGIC [Concomitant]
     Dosage: UNK
     Dates: start: 20131128
  10. PHOSPHOSORB [Concomitant]
     Dosage: UNK
     Dates: start: 20131128
  11. GAVISCON [Concomitant]
     Dosage: UNK
     Dates: start: 20131128
  12. EMLA PATCH [Concomitant]
     Dosage: UNK
     Dates: start: 20131128

REACTIONS (2)
  - Thrombocytopenia [Not Recovered/Not Resolved]
  - Epistaxis [Unknown]
